FAERS Safety Report 7018018-1 (Version None)
Quarter: 2010Q3

REPORT INFORMATION
  Report Type: 
  Country: None (occurrence: None)
  Receive Date: 20100928
  Receipt Date: 20100916
  Transmission Date: 20110219
  Serious: Yes (Other)
  Sender: FDA-Public Use
  Company Number: PHHY2010CA61863

PATIENT

DRUGS (2)
  1. ACLASTA [Suspect]
     Indication: OSTEOPOROSIS
     Dosage: 5 MG
     Route: 042
     Dates: start: 20091006
  2. CALCIUM [Concomitant]

REACTIONS (3)
  - FALL [None]
  - PELVIC FRACTURE [None]
  - WHEELCHAIR USER [None]
